FAERS Safety Report 12692727 (Version 1)
Quarter: 2016Q3

REPORT INFORMATION
  Report Type: Spontaneous
  Country: CN (occurrence: CN)
  Receive Date: 20160829
  Receipt Date: 20160829
  Transmission Date: 20161109
  Serious: Yes (Hospitalization)
  Sender: FDA-Public Use
  Company Number: CN-INDICUS PHARMA-000446

PATIENT
  Age: 66 Year
  Sex: Male

DRUGS (8)
  1. ASPIRIN. [Suspect]
     Active Substance: ASPIRIN
     Indication: ANTICOAGULANT THERAPY
  2. CLOPIDOGREL [Suspect]
     Active Substance: CLOPIDOGREL BISULFATE
     Indication: ANTICOAGULANT THERAPY
  3. ATORVASTATIN/ATORVASTATIN CALCIUM [Concomitant]
  4. CALCITRIOL. [Concomitant]
     Active Substance: CALCITRIOL
  5. ISOSORBIDE. [Concomitant]
     Active Substance: ISOSORBIDE
  6. METOPROLOL. [Concomitant]
     Active Substance: METOPROLOL
  7. ERYTHROPOIETIN [Concomitant]
     Active Substance: ERYTHROPOIETIN
  8. METFORMIN [Suspect]
     Active Substance: METFORMIN HYDROCHLORIDE
     Indication: DIABETES MELLITUS

REACTIONS (2)
  - Lactic acidosis [Recovered/Resolved]
  - Gastrointestinal haemorrhage [Unknown]
